FAERS Safety Report 8050993 (Version 2)
Quarter: 2020Q3

REPORT INFORMATION
  Report Type: Report from Study
  Country: US (occurrence: US)
  Receive Date: 20110725
  Receipt Date: 20110826
  Transmission Date: 20201104
  Serious: Yes (Hospitalization, Other)
  Sender: FDA-Public Use
  Company Number: US-ASTELLAS-2011US002674

PATIENT
  Age: 65 Year
  Sex: Male
  Weight: 76 kg

DRUGS (5)
  1. ZOMETA [Suspect]
     Active Substance: ZOLEDRONIC ACID
     Indication: PRODUCT USED FOR UNKNOWN INDICATION
     Dosage: UNK
     Route: 065
  2. ERLOTINIB TABLET [Suspect]
     Active Substance: ERLOTINIB
     Indication: BRONCHIOLOALVEOLAR CARCINOMA
     Dosage: 100 MG, UID/QD
     Route: 048
     Dates: start: 20110323, end: 20110601
  3. SELUMETINIB. [Suspect]
     Active Substance: SELUMETINIB
     Indication: BRONCHIOLOALVEOLAR CARCINOMA
     Dosage: 150 MG, UID/QD
     Route: 048
     Dates: start: 20110323, end: 20110602
  4. SELUMETINIB. [Suspect]
     Active Substance: SELUMETINIB
     Dosage: 150 MG, UID/QD
     Route: 048
     Dates: start: 20110604
  5. ERLOTINIB TABLET [Suspect]
     Active Substance: ERLOTINIB
     Dosage: 100 MG, UID/QD
     Route: 048
     Dates: start: 20110604

REACTIONS (8)
  - Prostatitis [Recovered/Resolved]
  - Arthralgia [Not Recovered/Not Resolved]
  - Dehydration [Not Recovered/Not Resolved]
  - Decreased appetite [Not Recovered/Not Resolved]
  - Rash [Recovering/Resolving]
  - Pyrexia [Recovered/Resolved]
  - Weight decreased [Unknown]
  - Hallucination [Recovered/Resolved]

NARRATIVE: CASE EVENT DATE: 20110501
